FAERS Safety Report 25750645 (Version 1)
Quarter: 2025Q3

REPORT INFORMATION
  Report Type: Spontaneous
  Country: US (occurrence: None)
  Receive Date: 20250829
  Receipt Date: 20250829
  Transmission Date: 20251021
  Serious: Yes (Death)
  Sender: FDA-CTU
  Company Number: None

PATIENT
  Age: 74 Year
  Sex: Female

DRUGS (15)
  1. PIRFENIDONE [Suspect]
     Active Substance: PIRFENIDONE
     Indication: Interstitial lung disease
     Dosage: 801MG QD ORAL
     Route: 048
     Dates: start: 20190829, end: 20250731
  2. GABAPENTIN [Concomitant]
     Active Substance: GABAPENTIN
  3. OMEPRAZOLE [Concomitant]
     Active Substance: OMEPRAZOLE
  4. SIMVASTATIN [Concomitant]
     Active Substance: SIMVASTATIN
  5. VITAMIN B12 [Concomitant]
     Active Substance: CYANOCOBALAMIN
  6. ASCORBIC ACID [Concomitant]
     Active Substance: ASCORBIC ACID
  7. Vit D3, [Concomitant]
  8. DUONEB [Concomitant]
     Active Substance: ALBUTEROL SULFATE\IPRATROPIUM BROMIDE
  9. TESSALON [Concomitant]
     Active Substance: BENZONATATE
  10. LIDOCAINE PATCH [Concomitant]
     Active Substance: LIDOCAINE
  11. bisacodyl rect supp [Concomitant]
  12. HALOPERIDOL [Concomitant]
     Active Substance: HALOPERIDOL
  13. HYOSCYAMINE [Concomitant]
     Active Substance: HYOSCYAMINE
  14. LORAZEPAM [Concomitant]
     Active Substance: LORAZEPAM
  15. morphine concentrate [Concomitant]

REACTIONS (5)
  - General physical health deterioration [None]
  - Confusional state [None]
  - Weight decreased [None]
  - Decreased appetite [None]
  - Oxygen saturation decreased [None]

NARRATIVE: CASE EVENT DATE: 20250731
